FAERS Safety Report 25154865 (Version 1)
Quarter: 2025Q2

REPORT INFORMATION
  Report Type: Spontaneous
  Country: US (occurrence: None)
  Receive Date: 20250403
  Receipt Date: 20250403
  Transmission Date: 20250716
  Serious: Yes (Hospitalization)
  Sender: FDA-CTU
  Company Number: None

PATIENT
  Age: 58 Year
  Sex: Male
  Weight: 106.59 kg

DRUGS (3)
  1. CYTARABINE [Suspect]
     Active Substance: CYTARABINE
  2. METHOTREXATE [Suspect]
     Active Substance: METHOTREXATE
  3. PONATINIB [Suspect]
     Active Substance: PONATINIB

REACTIONS (10)
  - Febrile neutropenia [None]
  - Cardiac arrest [None]
  - Complication associated with device [None]
  - Device related infection [None]
  - Cellulitis [None]
  - Bacteraemia [None]
  - Ventricular fibrillation [None]
  - Respiratory failure [None]
  - Coronary artery thrombosis [None]
  - Vascular stent thrombosis [None]

NARRATIVE: CASE EVENT DATE: 20250329
